FAERS Safety Report 8932961 (Version 2)
Quarter: 2012Q4

REPORT INFORMATION
  Report Type: 
  Country: BR (occurrence: BR)
  Receive Date: 20121129
  Receipt Date: 20121130
  Transmission Date: 20130627
  Serious: Yes (Other)
  Sender: FDA-Public Use
  Company Number: PHHY2012BR107242

PATIENT
  Sex: Female

DRUGS (4)
  1. DIOVAN [Suspect]
     Indication: HYPERTENSION
     Dosage: 320 mg, daily
     Route: 048
  2. PARCEL [Suspect]
     Indication: HEADACHE
     Dosage: 1 DF, daily
     Route: 048
  3. SELOZOK [Suspect]
     Indication: HYPERTENSION
     Dosage: 100 MG, daily
     Route: 048
  4. SIMVASTATIN [Concomitant]
     Indication: BLOOD CHOLESTEROL INCREASED
     Dosage: at 40 mg, QD (at night)
     Route: 048

REACTIONS (2)
  - Diabetes mellitus [Recovering/Resolving]
  - Blood pressure inadequately controlled [Recovered/Resolved]
